FAERS Safety Report 24749097 (Version 1)
Quarter: 2024Q4

REPORT INFORMATION
  Report Type: Report from Study
  Country: CA (occurrence: CA)
  Receive Date: 20241218
  Receipt Date: 20241218
  Transmission Date: 20250114
  Serious: Yes (Hospitalization, Other)
  Sender: SANDOZ
  Company Number: CA-002147023-NVSC2022CA232323

PATIENT
  Age: 81 Year
  Sex: Male

DRUGS (3)
  1. ERELZI [Suspect]
     Active Substance: ETANERCEPT-SZZS
     Dosage: 50 MG, BIW
     Route: 058
     Dates: start: 20190828
  2. ERELZI [Suspect]
     Active Substance: ETANERCEPT-SZZS
     Indication: Ankylosing spondylitis
     Dosage: 50 MG
     Route: 058
     Dates: start: 20190828
  3. ERELZI [Suspect]
     Active Substance: ETANERCEPT-SZZS
     Dosage: 60 MG (EVERY 2 WEEKS)
     Route: 058

REACTIONS (6)
  - Cerebrovascular accident [Unknown]
  - Cardiac failure [Unknown]
  - COVID-19 [Unknown]
  - Pneumonia [Unknown]
  - COVID-19 pneumonia [Unknown]
  - Malaise [Unknown]

NARRATIVE: CASE EVENT DATE: 20220215
